FAERS Safety Report 24984978 (Version 1)
Quarter: 2025Q1

REPORT INFORMATION
  Report Type: Spontaneous
  Country: ES (occurrence: ES)
  Receive Date: 20250219
  Receipt Date: 20250219
  Transmission Date: 20250409
  Serious: Yes (Death, Life-Threatening, Hospitalization)
  Sender: ACCORD
  Company Number: None

PATIENT
  Age: 72 Year
  Sex: Female
  Weight: 53.5 kg

DRUGS (13)
  1. AZACITIDINE [Suspect]
     Active Substance: AZACITIDINE
     Indication: Myelodysplastic syndrome
     Dates: start: 20241216, end: 20241220
  2. VENETOCLAX [Suspect]
     Active Substance: VENETOCLAX
     Indication: Myelodysplastic syndrome
     Dates: start: 20241228, end: 20250104
  3. HUMAN IMMUNOGLOBULIN G [Concomitant]
     Active Substance: HUMAN IMMUNOGLOBULIN G
     Indication: Respiratory syncytial virus infection
     Dates: start: 20250108, end: 20250108
  4. PREGABALIN [Concomitant]
     Active Substance: PREGABALIN
  5. ESOMEPRAZOLE [Concomitant]
     Active Substance: ESOMEPRAZOLE
  6. FOLIC ACID [Concomitant]
     Active Substance: FOLIC ACID
  7. CIPROFLOXACIN [Concomitant]
     Active Substance: CIPROFLOXACIN
     Dosage: STRENGTH: 500 MG, 14 TABLETS
  8. MIRTAZAPINE [Concomitant]
     Active Substance: MIRTAZAPINE
  9. Lexatin [Concomitant]
  10. CALCIFEDIOL [Concomitant]
     Active Substance: CALCIFEDIOL
  11. ACYCLOVIR [Concomitant]
     Active Substance: ACYCLOVIR
     Dosage: STRENGTH: 200 MG, 25 TABLETS
  12. PENTAMIDINE [Concomitant]
     Active Substance: PENTAMIDINE
  13. FENTANYL [Concomitant]
     Active Substance: FENTANYL
     Dosage: STRENGTH: 50 MICROGRAMS/H

REACTIONS (1)
  - Respiratory syncytial virus infection [Fatal]

NARRATIVE: CASE EVENT DATE: 20250101
